FAERS Safety Report 5016129-3 (Version None)
Quarter: 2006Q2

REPORT INFORMATION
  Report Type: 
  Country: None (occurrence: None)
  Receive Date: 20060601
  Receipt Date: 20060523
  Transmission Date: 20061013
  Serious: Yes (Hospitalization)
  Sender: FDA-Public Use
  Company Number: JP-BOEHRINGER INGELHEIM PHARMACEUTICALS, INC.-2006-BP-06047NB

PATIENT
  Age: 74 Year
  Sex: Male

DRUGS (9)
  1. MICARDIS [Suspect]
     Indication: HYPERTENSION
     Route: 048
     Dates: start: 20060407, end: 20060511
  2. PREDNISOLONE [Concomitant]
     Route: 048
     Dates: start: 20060227
  3. AMLODIPINE BESYLATE [Concomitant]
     Route: 048
     Dates: start: 20060303, end: 20060515
  4. SODIUM VALPROATE [Concomitant]
     Route: 048
     Dates: start: 20060318
  5. RABEPRAZOLE SODIUM [Concomitant]
     Route: 048
     Dates: start: 20060227
  6. BROTIZOLAM [Concomitant]
     Route: 048
     Dates: start: 20060306
  7. PICOSULFAT (SODIUM PICOSULFATE) [Concomitant]
     Route: 048
     Dates: start: 20060409
  8. BAKTAR [Concomitant]
     Route: 048
     Dates: start: 20060313
  9. CYCLOPHOSPHAMIDE [Concomitant]
     Route: 042
     Dates: start: 20060428

REACTIONS (2)
  - LOSS OF CONSCIOUSNESS [None]
  - MUSCLE SPASMS [None]
